FAERS Safety Report 11618569 (Version 1)
Quarter: 2015Q4

REPORT INFORMATION
  Report Type: Spontaneous
  Country: US (occurrence: US)
  Receive Date: 20151012
  Receipt Date: 20151012
  Transmission Date: 20160304
  Serious: No
  Sender: FDA-Public Use
  Company Number: US-ASTRAZENECA-2015SE97294

PATIENT
  Age: 49 Year
  Sex: Male
  Weight: 98 kg

DRUGS (16)
  1. TRAMADOL. [Suspect]
     Active Substance: TRAMADOL
     Indication: BACK PAIN
     Route: 048
  2. NEURONTIN [Suspect]
     Active Substance: GABAPENTIN
     Dosage: TWO 50MG TABLET THREE TIMES A DAY
     Route: 065
  3. LYRICA [Suspect]
     Active Substance: PREGABALIN
     Indication: BACK PAIN
     Route: 048
     Dates: start: 20150128
  4. IBUPROFEN. [Suspect]
     Active Substance: IBUPROFEN
     Route: 065
  5. TRAMADOL. [Suspect]
     Active Substance: TRAMADOL
     Indication: NERVE INJURY
     Route: 048
  6. LYRICA [Suspect]
     Active Substance: PREGABALIN
     Indication: BACK PAIN
     Dosage: ONE 25MG TABLET AND ONE 100MG TABLET THREE TIMES A DAY
     Route: 048
  7. GUAIFENESIN. [Concomitant]
     Active Substance: GUAIFENESIN
  8. MIRTAZAPINE. [Concomitant]
     Active Substance: MIRTAZAPINE
  9. PRILOSEC [Suspect]
     Active Substance: OMEPRAZOLE MAGNESIUM
     Route: 048
  10. IBUPROFEN. [Suspect]
     Active Substance: IBUPROFEN
     Route: 065
  11. LYRICA [Suspect]
     Active Substance: PREGABALIN
     Indication: NERVE INJURY
     Dosage: ONE 25MG TABLET AND ONE 100MG TABLET THREE TIMES A DAY
     Route: 048
  12. IBUPROFEN. [Suspect]
     Active Substance: IBUPROFEN
     Route: 065
  13. LYRICA [Suspect]
     Active Substance: PREGABALIN
     Indication: NERVE INJURY
     Route: 048
     Dates: start: 20150128
  14. WELLBUTRIN [Concomitant]
     Active Substance: BUPROPION HYDROCHLORIDE
  15. CLONAZEPAM. [Concomitant]
     Active Substance: CLONAZEPAM
  16. METHYLCELLULOSE [Concomitant]
     Active Substance: METHYLCELLULOSES

REACTIONS (8)
  - Hypoaesthesia [Not Recovered/Not Resolved]
  - Onychalgia [Not Recovered/Not Resolved]
  - Drug dose omission [Not Recovered/Not Resolved]
  - Off label use [Not Recovered/Not Resolved]
  - Pain [Not Recovered/Not Resolved]
  - Drug ineffective [Recovered/Resolved]
  - Gait disturbance [Unknown]
  - Constipation [Unknown]
